FAERS Safety Report 13546896 (Version 2)
Quarter: 2017Q2

REPORT INFORMATION
  Report Type: Spontaneous
  Country: US (occurrence: US)
  Receive Date: 20170515
  Receipt Date: 20170608
  Transmission Date: 20170830
  Serious: Yes (Other)
  Sender: FDA-Public Use
  Company Number: US-AMGEN-USASP2017071749

PATIENT
  Age: 72 Year
  Sex: Male
  Weight: 68.4 kg

DRUGS (2)
  1. ISONIAZIDE [Concomitant]
     Active Substance: ISONIAZID
     Indication: LATENT TUBERCULOSIS
     Dosage: 300 MG, QD
     Dates: start: 20161114, end: 20170201
  2. ENBREL [Suspect]
     Active Substance: ETANERCEPT
     Indication: ANKYLOSING SPONDYLITIS
     Dosage: 50 MG, QWK
     Route: 058
     Dates: start: 201612, end: 201702

REACTIONS (3)
  - Thrombocytopenia [Recovering/Resolving]
  - Hepatic enzyme increased [Recovered/Resolved]
  - False positive investigation result [Unknown]

NARRATIVE: CASE EVENT DATE: 20170208
